FAERS Safety Report 16954679 (Version 3)
Quarter: 2019Q4

REPORT INFORMATION
  Report Type: Spontaneous
  Country: UA (occurrence: UA)
  Receive Date: 20191024
  Receipt Date: 20191127
  Transmission Date: 20200122
  Serious: Yes (Other)
  Sender: FDA-Public Use
  Company Number: NVSC2019UA013464

PATIENT
  Age: 35 Year
  Sex: Female

DRUGS (3)
  1. TOBRADEX [Suspect]
     Active Substance: DEXAMETHASONE\TOBRAMYCIN
     Indication: EYE INFLAMMATION
  2. TOBRADEX [Suspect]
     Active Substance: DEXAMETHASONE\TOBRAMYCIN
     Indication: LACRIMATION INCREASED
  3. TOBRADEX [Suspect]
     Active Substance: DEXAMETHASONE\TOBRAMYCIN
     Indication: CONJUNCTIVITIS
     Dosage: UNK (2 YEARS AGO USED: ABOUT SIX MONTHS)
     Route: 065

REACTIONS (3)
  - Intraocular pressure increased [Recovering/Resolving]
  - Glaucoma [Unknown]
  - Cataract subcapsular [Unknown]
